FAERS Safety Report 5932774-2 (Version None)
Quarter: 2008Q4

REPORT INFORMATION
  Report Type: 
  Country: None (occurrence: None)
  Receive Date: 20081028
  Receipt Date: 20081022
  Transmission Date: 20090506
  Serious: Yes (Hospitalization)
  Sender: FDA-Public Use
  Company Number: A0753774A

PATIENT
  Age: 57 Year
  Sex: Male
  Weight: 96 kg

DRUGS (4)
  1. AVODART [Suspect]
     Dosage: 2CAP PER DAY
     Route: 048
  2. ANDROGEL [Suspect]
     Indication: ANDROGEN REPLACEMENT THERAPY
     Dosage: 15G PER DAY
     Route: 061
  3. ARIMIDEX [Suspect]
     Dosage: 2TAB PER DAY
     Route: 048
  4. LIPITOR [Concomitant]
     Route: 048

REACTIONS (25)
  - ABDOMINAL PAIN [None]
  - ANAEMIA [None]
  - ASCITES [None]
  - ATELECTASIS [None]
  - BLOOD TESTOSTERONE INCREASED [None]
  - CHILLS [None]
  - GASTRITIS [None]
  - GASTROOESOPHAGEAL REFLUX DISEASE [None]
  - HAEMATOCRIT DECREASED [None]
  - HAEMOGLOBIN DECREASED [None]
  - HYPERCOAGULATION [None]
  - HYPERVENTILATION [None]
  - ILEUS PARALYTIC [None]
  - LOCALISED OEDEMA [None]
  - MESENTERIC VASCULAR INSUFFICIENCY [None]
  - MESENTERIC VEIN THROMBOSIS [None]
  - ORAL CANDIDIASIS [None]
  - PAIN [None]
  - PHLEBITIS [None]
  - PLATELET COUNT INCREASED [None]
  - PLEURAL EFFUSION [None]
  - PORTAL VEIN THROMBOSIS [None]
  - PYREXIA [None]
  - STAPHYLOCOCCAL INFECTION [None]
  - WHITE BLOOD CELL COUNT INCREASED [None]
